FAERS Safety Report 6163214-9 (Version None)
Quarter: 2009Q2

REPORT INFORMATION
  Report Type: 
  Country: None (occurrence: None)
  Receive Date: 20090420
  Receipt Date: 20090420
  Transmission Date: 20091009
  Serious: No
  Sender: FDA-Public Use
  Company Number: None

PATIENT
  Age: 48 Year
  Sex: Male
  Weight: 154.2 kg

DRUGS (22)
  1. VARENICLINE [Suspect]
     Indication: SMOKING CESSATION THERAPY
     Dosage: 1 MG BID PO
     Route: 048
     Dates: start: 20071004, end: 20071101
  2. ALBUTEROL HFA ORAL INH [Concomitant]
  3. ALBUTEROL INH SOLN [Concomitant]
  4. CYANOCOBALA,IN INJ [Concomitant]
  5. DILTIAZEM HCL [Concomitant]
  6. DOCUSATE SODIUM [Concomitant]
  7. FOLIC ACID [Concomitant]
  8. FREESTYLE BLOOD GLUCOSE [Concomitant]
  9. FUROSEMIDE [Concomitant]
  10. GUAIFENESIN ORAL [Concomitant]
  11. HYDROCHLOROTHIAZIDE [Concomitant]
  12. LISINOPRIL [Concomitant]
  13. MINOCYCLINE HCL [Concomitant]
  14. MOXIFLOXACIN HCL [Concomitant]
  15. OXYBUTYNIN CHLORIDE [Concomitant]
  16. POTASSIUM CHLORIDE [Concomitant]
  17. PREDNISONE TAB [Concomitant]
  18. PSYLLIUM + DEXTROSE POWDER [Concomitant]
  19. SERTRALINE HCL [Concomitant]
  20. SIMVASTATIN [Concomitant]
  21. TRAZODONE HCL [Concomitant]
  22. WITCH HAZEL TOPICAL PADS [Concomitant]

REACTIONS (1)
  - MENTAL DISORDER [None]
